FAERS Safety Report 11780761 (Version 1)
Quarter: 2015Q4

REPORT INFORMATION
  Report Type: Other
  Country: US (occurrence: US)
  Receive Date: 20151126
  Receipt Date: 20151126
  Transmission Date: 20160305
  Serious: Yes (Life-Threatening, Hospitalization, Other)
  Sender: FDA-Public Use
  Company Number: US-DEXPHARM-20152285

PATIENT
  Age: 50 Year
  Sex: Male

DRUGS (8)
  1. SOLIFENACIN [Suspect]
     Active Substance: SOLIFENACIN
  2. FERROUS SULFATE [Suspect]
     Active Substance: FERROUS SULFATE\FERROUS SULFATE, DRIED
  3. OLANZAPINE. [Suspect]
     Active Substance: OLANZAPINE
     Indication: AGITATION
     Dosage: TOTAL
  4. VALPROATE [Concomitant]
     Active Substance: VALPROATE SODIUM
     Dosage: 2000 MG, DECREASE TO 500 MG TWICE DAILY
  5. LISINOPRIL. [Concomitant]
     Active Substance: LISINOPRIL
  6. OMEPRAZOLE. [Interacting]
     Active Substance: OMEPRAZOLE
  7. CLOZAPINE. [Interacting]
     Active Substance: CLOZAPINE
     Dosage: 200 MG ONCE IN THE AFTERNOON AND 400 MG AT BEDTIME
  8. OLANZAPINE. [Suspect]
     Active Substance: OLANZAPINE
     Indication: PSYCHOTIC DISORDER
     Dosage: TOTAL

REACTIONS (11)
  - Constipation [Recovering/Resolving]
  - Antipsychotic drug level increased [None]
  - Drug interaction [Unknown]
  - Mental status changes [Unknown]
  - Delirium [Recovered/Resolved]
  - Psychotic disorder [None]
  - Ileus [None]
  - Abdominal distension [Unknown]
  - Gastrointestinal hypomotility [Unknown]
  - Acute kidney injury [Recovered/Resolved]
  - Hypernatraemia [Recovered/Resolved]
